FAERS Safety Report 10369523 (Version 2)
Quarter: 2014Q3

REPORT INFORMATION
  Report Type: Spontaneous
  Country: US (occurrence: US)
  Receive Date: 20140807
  Receipt Date: 20140819
  Transmission Date: 20150326
  Serious: Yes (Hospitalization)
  Sender: FDA-Public Use
  Company Number: US-GILEAD-2014-0111102

PATIENT
  Age: 68 Year
  Sex: Female

DRUGS (4)
  1. WARFARIN [Concomitant]
     Active Substance: WARFARIN
  2. REVATIO [Concomitant]
     Active Substance: SILDENAFIL CITRATE
  3. LETAIRIS [Suspect]
     Active Substance: AMBRISENTAN
     Indication: PRODUCT USED FOR UNKNOWN INDICATION
     Dosage: 5 MG, QD
     Route: 065
     Dates: start: 20140610
  4. TYVASO [Concomitant]
     Active Substance: TREPROSTINIL

REACTIONS (3)
  - Back pain [Unknown]
  - Scar [Unknown]
  - Abdominal pain upper [Unknown]
